FAERS Safety Report 10661840 (Version 2)
Quarter: 2014Q4

REPORT INFORMATION
  Report Type: Report from Study
  Country: US (occurrence: US)
  Receive Date: 20141218
  Receipt Date: 20141218
  Transmission Date: 20150529
  Serious: Yes (Other)
  Sender: FDA-Public Use
  Company Number: US-SA-2014SA163369

PATIENT
  Age: 12 Year
  Sex: Female
  Weight: 60.5 kg

DRUGS (5)
  1. LEVETIRACETAM. [Concomitant]
     Active Substance: LEVETIRACETAM
     Route: 048
  2. ONDASETRON [Concomitant]
     Route: 048
  3. CABAZITAXEL [Suspect]
     Active Substance: CABAZITAXEL
     Indication: NEOPLASM
     Route: 042
     Dates: start: 20141119, end: 20141119
  4. DEXAMETHASONE. [Concomitant]
     Active Substance: DEXAMETHASONE
     Route: 042
     Dates: start: 20141119, end: 20141119
  5. G-CSF [Suspect]
     Active Substance: FILGRASTIM
     Indication: NEOPLASM

REACTIONS (1)
  - Anaphylactic reaction [Recovered/Resolved]

NARRATIVE: CASE EVENT DATE: 20141119
